FAERS Safety Report 4550675-1 (Version None)
Quarter: 2004Q4

REPORT INFORMATION
  Report Type: 
  Country: None (occurrence: None)
  Receive Date: 20041217
  Receipt Date: 20040830
  Transmission Date: 20050328
  Serious: No
  Sender: FDA-Public Use
  Company Number: 2004-BP-06295BP

PATIENT
  Age: 80 Year
  Sex: Female

DRUGS (4)
  1. SPIRIVA [Suspect]
     Indication: CHRONIC OBSTRUCTIVE AIRWAYS DISEASE
     Dosage: 18 MCG *18 MCG 1IN 1 D) IH
     Route: 055
     Dates: start: 20040701
  2. PREVACID [Concomitant]
  3. TENORMIN [Concomitant]
  4. DYAZIDE [Concomitant]

REACTIONS (6)
  - ABDOMINAL PAIN UPPER [None]
  - CHEST PAIN [None]
  - DRY MOUTH [None]
  - DRY THROAT [None]
  - PAIN IN EXTREMITY [None]
  - RASH PRURITIC [None]
